FAERS Safety Report 8926753 (Version 1)
Quarter: 2012Q4

REPORT INFORMATION
  Report Type: 
  Country: US (occurrence: US)
  Receive Date: 20121127
  Receipt Date: 20121127
  Transmission Date: 20130627
  Serious: No
  Sender: FDA-Public Use
  Company Number: US-009507513-1211USA009780

PATIENT
  Sex: Female

DRUGS (1)
  1. FOLLISTIM AQ CARTRIDGE [Suspect]
     Dosage: 225 IU, qd
     Dates: start: 20121111

REACTIONS (3)
  - Underdose [Unknown]
  - Product quality issue [Unknown]
  - No adverse event [Unknown]
